FAERS Safety Report 21357129 (Version 1)
Quarter: 2022Q3

REPORT INFORMATION
  Report Type: Spontaneous
  Country: FR (occurrence: FR)
  Receive Date: 20220921
  Receipt Date: 20220921
  Transmission Date: 20221027
  Serious: Yes (Other)
  Sender: FDA-Public Use
  Company Number: FR-AFSSAPS-NY20222547

PATIENT
  Age: 75 Year
  Sex: Female
  Weight: 61.7 kg

DRUGS (12)
  1. AMOXICILLIN [Suspect]
     Active Substance: AMOXICILLIN
     Indication: Staphylococcal sepsis
     Dosage: 6 GRAM, ONCE A DAY
     Route: 048
     Dates: start: 20220619, end: 20220627
  2. AMOXICILLIN [Suspect]
     Active Substance: AMOXICILLIN
     Indication: Escherichia sepsis
  3. AMOXICILLIN [Suspect]
     Active Substance: AMOXICILLIN
     Indication: Escherichia sepsis
     Dosage: 6 GRAM, ONCE A DAY
     Route: 042
     Dates: start: 20220609, end: 20220618
  4. AMOXICILLIN [Suspect]
     Active Substance: AMOXICILLIN
     Indication: Staphylococcal sepsis
  5. ATORVASTATIN [Concomitant]
     Active Substance: ATORVASTATIN
     Indication: Dyslipidaemia
     Dosage: 10 MILLIGRAM, ONCE A DAY
     Route: 048
  6. INSULIN GLARGINE [Concomitant]
     Active Substance: INSULIN GLARGINE
     Indication: Type 2 diabetes mellitus
     Dosage: UNK
     Route: 058
  7. GLIMEPIRIDE [Concomitant]
     Active Substance: GLIMEPIRIDE
     Indication: Type 2 diabetes mellitus
     Dosage: 1 DOSAGE FORM, ONCE A DAY
     Route: 048
  8. Carteol [Concomitant]
     Indication: Glaucoma
     Dosage: 3 DROP, ONCE A DAY
  9. LINEZOLID [Concomitant]
     Active Substance: LINEZOLID
     Indication: Staphylococcal infection
     Dosage: 2 DOSAGE FORM, ONCE A DAY
     Route: 048
     Dates: start: 20220613
  10. NOVORAPID [Concomitant]
     Active Substance: INSULIN ASPART
     Indication: Type 2 diabetes mellitus
     Dosage: UNK
     Route: 058
  11. VANCOMYCIN [Concomitant]
     Active Substance: VANCOMYCIN
     Indication: Bacterial infection
     Dosage: 1.5 DOSAGE FORM, ONCE A DAY (1500 MG/D)
     Route: 042
     Dates: start: 20220609
  12. VALACYCLOVIR HYDROCHLORIDE [Concomitant]
     Active Substance: VALACYCLOVIR HYDROCHLORIDE
     Indication: Product used for unknown indication
     Dosage: 500 MILLIGRAM, ONCE A DAY
     Route: 048

REACTIONS (2)
  - Acute kidney injury [Not Recovered/Not Resolved]
  - Eosinophilia [Recovering/Resolving]

NARRATIVE: CASE EVENT DATE: 20220614
